FAERS Safety Report 6285180-8 (Version None)
Quarter: 2009Q3

REPORT INFORMATION
  Report Type: 
  Country: None (occurrence: None)
  Receive Date: 20090727
  Receipt Date: 20090715
  Transmission Date: 20100115
  Serious: Yes (Hospitalization, Other)
  Sender: FDA-Public Use
  Company Number: PHHY2009JP09259

PATIENT
  Sex: Female
  Weight: 44 kg

DRUGS (6)
  1. ZOMETA [Suspect]
     Indication: METASTASES TO BONE
     Dosage: 4 MG, UNK
     Route: 042
     Dates: start: 20080604, end: 20080731
  2. BISPHONAL [Concomitant]
     Indication: METASTASES TO BONE
     Dosage: UNK
     Dates: start: 20050201
  3. HERCEPTIN [Concomitant]
     Indication: BREAST CANCER
     Dosage: 93 MG, UNK
     Route: 042
     Dates: start: 20060724
  4. ARICEPT [Concomitant]
     Dosage: 3 MG, UNK
     Route: 048
     Dates: start: 20060101
  5. OXYCONTIN [Concomitant]
     Indication: CANCER PAIN
     Dosage: 30 MG, UNK
     Route: 048
     Dates: start: 20060101
  6. NOVOLIN R [Concomitant]
     Dosage: 19 IU, UNK
     Route: 058

REACTIONS (15)
  - ABSCESS DRAINAGE [None]
  - DENTAL CARIES [None]
  - DENTAL OPERATION [None]
  - ENDODONTIC PROCEDURE [None]
  - GINGIVAL ERYTHEMA [None]
  - GINGIVAL HYPERPLASIA [None]
  - GINGIVITIS [None]
  - OSTEITIS [None]
  - OSTEONECROSIS [None]
  - PAIN [None]
  - PYREXIA [None]
  - SEQUESTRECTOMY [None]
  - SWELLING [None]
  - SWELLING FACE [None]
  - TOOTH EXTRACTION [None]
